FAERS Safety Report 5033457-6 (Version None)
Quarter: 2006Q2

REPORT INFORMATION
  Report Type: 
  Country: None (occurrence: None)
  Receive Date: 20060623
  Receipt Date: 20060612
  Transmission Date: 20061013
  Serious: Yes (Hospitalization)
  Sender: FDA-Public Use
  Company Number: PHBS2006CO08775

PATIENT
  Age: 87 Year
  Sex: Female

DRUGS (4)
  1. ZELMAC [Suspect]
     Indication: IRRITABLE BOWEL SYNDROME
     Dosage: 6 MG, UNK
     Route: 048
     Dates: start: 20060606
  2. VALSARTAN [Concomitant]
     Dosage: 80 MG, Q12H
     Route: 048
  3. DULCOLAX [Concomitant]
     Dosage: 1 TABLET
     Route: 048
  4. OMEPRAZOL [Concomitant]
     Dosage: 20 MG/DAY
     Route: 048

REACTIONS (3)
  - ASTHENIA [None]
  - HEART VALVE STENOSIS [None]
  - HYPOTENSION [None]
